FAERS Safety Report 8018784-2 (Version None)
Quarter: 2012Q1

REPORT INFORMATION
  Report Type: 
  Country: None (occurrence: None)
  Receive Date: 20120103
  Receipt Date: 20111228
  Transmission Date: 20120608
  Serious: Yes (Other)
  Sender: FDA-Public Use
  Company Number: US-PFIZER INC-2011315368

PATIENT
  Sex: Female
  Weight: 99.773 kg

DRUGS (3)
  1. TOPROL-XL [Concomitant]
     Dosage: 20 MG, 2X/DAY
  2. REVATIO [Suspect]
     Indication: PULMONARY HYPERTENSION
     Dosage: 20 MG, 3X/DAY
     Route: 048
     Dates: start: 20111201, end: 20111223
  3. NORVASC [Concomitant]
     Dosage: UNK

REACTIONS (3)
  - FEAR [None]
  - CHEST PAIN [None]
  - HYPOTENSION [None]
